FAERS Safety Report 7054434-X (Version None)
Quarter: 2010Q4

REPORT INFORMATION
  Report Type: 
  Country: None (occurrence: None)
  Receive Date: 20101020
  Receipt Date: 20100921
  Transmission Date: 20110411
  Serious: Yes (Other)
  Sender: FDA-Public Use
  Company Number: PHHY2010BR66393

PATIENT

DRUGS (10)
  1. VALSARTAN [Suspect]
     Dosage: 80 MG PER DAY
     Dates: start: 20030101
  2. VALSARTAN [Suspect]
     Dosage: 320 MG PER DAY
     Dates: start: 20080301
  3. LOVASTATIN [Concomitant]
  4. ACETYLSALICYLIC ACID SRT [Concomitant]
  5. ENALAPRIL MALEATE [Concomitant]
  6. AMIODARONE HCL [Concomitant]
  7. ALLOPURINOL [Concomitant]
  8. DIPYRIDAMOLE [Concomitant]
  9. AMLODIPINE [Concomitant]
     Dosage: 5 MG PER DAY
  10. ATORVASTATIN [Concomitant]
     Dosage: 10 MG PER DAY

REACTIONS (8)
  - AKINESIA [None]
  - ARTERIOSCLEROSIS [None]
  - ARTERIOSCLEROSIS CORONARY ARTERY [None]
  - ATRIAL FLUTTER [None]
  - HYPOPERFUSION [None]
  - MITRAL VALVE CALCIFICATION [None]
  - MITRAL VALVE INCOMPETENCE [None]
  - OEDEMA PERIPHERAL [None]
